FAERS Safety Report 8812966 (Version 1)
Quarter: 2012Q4

REPORT INFORMATION
  Report Type: 
  Country: US (occurrence: US)
  Receive Date: 20120927
  Receipt Date: 20120927
  Transmission Date: 20130627
  Serious: No
  Sender: FDA-Public Use
  Company Number: US-AMGEN-USASP2012034729

PATIENT
  Age: 53 Year
  Sex: Female

DRUGS (8)
  1. PROLIA [Suspect]
     Indication: OSTEOPOROSIS POSTMENOPAUSAL
     Dosage: 60 mg, q6mo
     Dates: start: 2012
  2. CALCIUM [Concomitant]
  3. VITAMIN D3 [Concomitant]
  4. FISH OIL [Concomitant]
  5. VITAMIN C [Concomitant]
  6. LEVOXYL [Concomitant]
  7. ALLERGY MEDICATION [Concomitant]
  8. FLUOXETINE [Concomitant]

REACTIONS (4)
  - Pain in jaw [Not Recovered/Not Resolved]
  - Sensitivity of teeth [Not Recovered/Not Resolved]
  - Gingival recession [Not Recovered/Not Resolved]
  - Insomnia [Not Recovered/Not Resolved]
